FAERS Safety Report 7516283-5 (Version None)
Quarter: 2011Q2

REPORT INFORMATION
  Report Type: 
  Country: None (occurrence: None)
  Receive Date: 20110601
  Receipt Date: 20110519
  Transmission Date: 20111010
  Serious: Yes (Hospitalization, Other)
  Sender: FDA-Public Use
  Company Number: PHEH2010US03848

PATIENT
  Sex: Female

DRUGS (5)
  1. FENTANYL [Suspect]
  2. PEPCID [Concomitant]
  3. CARAFATE [Concomitant]
  4. COMPAZINE [Concomitant]
  5. AREDIA [Suspect]

REACTIONS (12)
  - TROPONIN INCREASED [None]
  - OVERDOSE [None]
  - APNOEA [None]
  - CHEST PAIN [None]
  - ECHOCARDIOGRAM ABNORMAL [None]
  - EPISTAXIS [None]
  - BRONCHITIS [None]
  - TRICUSPID VALVE INCOMPETENCE [None]
  - LOSS OF CONSCIOUSNESS [None]
  - NASAL SEPTUM DEVIATION [None]
  - BLOOD CREATINE PHOSPHOKINASE INCREASED [None]
  - PULMONARY HYPERTENSION [None]
